FAERS Safety Report 18192394 (Version 1)
Quarter: 2020Q3

REPORT INFORMATION
  Report Type: Spontaneous
  Country: US (occurrence: US)
  Receive Date: 20200825
  Receipt Date: 20200825
  Transmission Date: 20201103
  Serious: Yes (Death)
  Sender: FDA-Public Use
  Company Number: None

PATIENT
  Age: 49 Year
  Sex: Female
  Weight: 132 kg

DRUGS (1)
  1. REMDESIVIR. [Suspect]
     Active Substance: REMDESIVIR
     Indication: COVID-19
     Route: 040
     Dates: start: 20200820, end: 20200822

REACTIONS (5)
  - Cardio-respiratory arrest [None]
  - Pulseless electrical activity [None]
  - Mental status changes [None]
  - Blood pressure decreased [None]
  - Cardiac arrest [None]

NARRATIVE: CASE EVENT DATE: 20200823
